FAERS Safety Report 5170644-0 (Version None)
Quarter: 2006Q4

REPORT INFORMATION
  Report Type: 
  Country: None (occurrence: None)
  Receive Date: 20061201
  Receipt Date: 20061115
  Transmission Date: 20070319
  Serious: Yes (Hospitalization)
  Sender: FDA-Public Use
  Company Number: 8020019

PATIENT
  Age: 38 Year
  Sex: Female
  Weight: 40 kg

DRUGS (8)
  1. KEPPRA [Suspect]
     Indication: EPILEPSY
     Dosage: 500 MG /D PO
     Route: 048
     Dates: start: 20060701, end: 20060901
  2. KEPPRA [Suspect]
     Indication: EPILEPSY
     Dosage: 1000 MG /D PO
     Route: 048
     Dates: start: 20060901
  3. KEPPRA [Suspect]
     Indication: EPILEPSY
     Dosage: 1500 MG
     Dates: start: 20061001
  4. LAMICTAL [Concomitant]
  5. TARDYFERON [Concomitant]
  6. OFLOCET [Concomitant]
  7. INIPOMP [Concomitant]
  8. CALCIPARINE [Concomitant]

REACTIONS (5)
  - INFECTION [None]
  - OVERDOSE [None]
  - PYELONEPHRITIS [None]
  - RENAL FAILURE [None]
  - THROMBOCYTOPENIA [None]
